FAERS Safety Report 7760042-5 (Version None)
Quarter: 2011Q3

REPORT INFORMATION
  Report Type: 
  Country: None (occurrence: None)
  Receive Date: 20110919
  Receipt Date: 20110909
  Transmission Date: 20111222
  Serious: Yes (Other)
  Sender: FDA-Public Use
  Company Number: US-BAYER-2011-001143

PATIENT
  Age: 33 Year
  Sex: Female
  Weight: 112.47 kg

DRUGS (4)
  1. YAZ [Suspect]
     Indication: ACNE
     Dosage: UNK
     Dates: start: 20070101, end: 20090101
  2. FLUCONAZOLE [Concomitant]
     Dosage: 100 MG, UNK
     Dates: start: 20090323
  3. IMITREX [Concomitant]
     Indication: MIGRAINE
     Route: 048
  4. METRONIDAZOLE [Concomitant]
     Dosage: 500 MG, UNK
     Dates: start: 20090409

REACTIONS (4)
  - GALLBLADDER DISORDER [None]
  - CHOLECYSTITIS CHRONIC [None]
  - PAIN [None]
  - INJURY [None]
